FAERS Safety Report 5113405-0 (Version None)
Quarter: 2006Q3

REPORT INFORMATION
  Report Type: 
  Country: None (occurrence: None)
  Receive Date: 20060920
  Receipt Date: 20060905
  Transmission Date: 20061208
  Serious: Yes (Death, Hospitalization)
  Sender: FDA-Public Use
  Company Number: 2006001745

PATIENT
  Age: 60 Year
  Sex: Male

DRUGS (11)
  1. TARCEVA [Suspect]
     Indication: LUNG NEOPLASM MALIGNANT
     Dosage: 150 MG (QD), ORAL
     Route: 048
     Dates: start: 20060713
  2. METOPROLOL TARTRATE [Concomitant]
  3. SYMBICORT            (SYMBICORT) [Concomitant]
  4. BETAPRED [Concomitant]
  5. IMPUGAN (FUROSEMIDE) [Concomitant]
  6. DIGOXIN [Concomitant]
  7. MORPHINE [Concomitant]
  8. STESOLID NOVUM (STESOLID NOVUM) [Concomitant]
  9. SPIRONOLACTONE [Concomitant]
  10. ASPIRIN [Concomitant]
  11. BRICANYL [Concomitant]

REACTIONS (1)
  - BRONCHOPNEUMONIA [None]
